FAERS Safety Report 19836842 (Version 1)
Quarter: 2021Q3

REPORT INFORMATION
  Report Type: Report from Study
  Country: CA (occurrence: CA)
  Receive Date: 20210915
  Receipt Date: 20210915
  Transmission Date: 20211014
  Serious: Yes (Other)
  Sender: FDA-Public Use
  Company Number: CA-PUMA BIOTECHNOLOGY, INC.-2021-PUM-CA004049

PATIENT

DRUGS (4)
  1. LOPERAMIDE [Concomitant]
     Active Substance: LOPERAMIDE
     Indication: PRODUCT USED FOR UNKNOWN INDICATION
     Dosage: UNK
  2. NERLYNX [Suspect]
     Active Substance: NERATINIB
     Dosage: 240 MG, DAILY
     Route: 048
     Dates: start: 2021
  3. NERLYNX [Suspect]
     Active Substance: NERATINIB
     Indication: BREAST CANCER METASTATIC
     Dosage: 120 MG, DAILY
     Route: 048
     Dates: start: 20210714
  4. NERLYNX [Suspect]
     Active Substance: NERATINIB
     Indication: OFF LABEL USE
     Dosage: 160 MG, DAILY
     Route: 048
     Dates: start: 2021

REACTIONS (2)
  - Off label use [Recovered/Resolved]
  - Mastitis [Unknown]
